FAERS Safety Report 9466119 (Version 1)
Quarter: 2013Q3

REPORT INFORMATION
  Report Type: Spontaneous
  Country: US (occurrence: None)
  Receive Date: 20130816
  Receipt Date: 20130816
  Transmission Date: 20140515
  Serious: Yes (Other)
  Sender: FDA-Public Use
  Company Number: None

PATIENT
  Age: 58 Year
  Sex: Male

DRUGS (8)
  1. HUMIRA [Suspect]
     Indication: COLITIS ULCERATIVE
     Dosage: 40MG/0.8 ML ONCE WKLY SUBCUTONEOUSLY
     Dates: end: 20130322
  2. OMEPRAZOLE [Concomitant]
  3. PREDNISONE [Concomitant]
  4. LIALDA [Concomitant]
  5. ASPIRIN [Concomitant]
  6. MELAXICAN [Concomitant]
  7. METOPROLOL [Suspect]
  8. GEMFIBROZIL [Suspect]

REACTIONS (1)
  - Pneumonia [None]
